FAERS Safety Report 4642209-8 (Version None)
Quarter: 2005Q2

REPORT INFORMATION
  Report Type: 
  Country: None (occurrence: None)
  Receive Date: 20050422
  Receipt Date: 20050412
  Transmission Date: 20051028
  Serious: Yes (Death, Other)
  Sender: FDA-Public Use
  Company Number: US-JNJFOC-20050306246

PATIENT

DRUGS (2)
  1. REOPRO [Suspect]
     Route: 042
  2. HEPARIN [Suspect]
     Indication: DRUG USE FOR UNKNOWN INDICATION

REACTIONS (2)
  - EYE HAEMORRHAGE [None]
  - HAEMORRHAGE INTRACRANIAL [None]
